FAERS Safety Report 15169096 (Version 2)
Quarter: 2018Q3

REPORT INFORMATION
  Report Type: Spontaneous
  Country: US (occurrence: US)
  Receive Date: 20180720
  Receipt Date: 20180921
  Transmission Date: 20181010
  Serious: No
  Sender: FDA-Public Use
  Company Number: US-IGSA-SR10005961

PATIENT
  Age: 85 Year
  Sex: Male
  Weight: 103.6 kg

DRUGS (3)
  1. FLEBOGAMMA DIF [Suspect]
     Active Substance: HUMAN IMMUNOGLOBULIN G
     Indication: HYPOGAMMAGLOBULINAEMIA
     Dosage: 0 G, UNKNOWN
     Route: 042
     Dates: start: 20180215
  2. HYDROXYZINE [Concomitant]
     Active Substance: HYDROXYZINE HYDROCHLORIDE
     Indication: PREMEDICATION
     Dosage: 25 MG, UNK
     Route: 048
     Dates: start: 20180215, end: 20180215
  3. APAP [Concomitant]
     Active Substance: ACETAMINOPHEN
     Indication: PREMEDICATION
     Dosage: 650 MG, UNK
     Route: 048
     Dates: start: 20180215, end: 20180215

REACTIONS (2)
  - Hypersensitivity [None]
  - Chills [Recovered/Resolved]

NARRATIVE: CASE EVENT DATE: 20180215
